FAERS Safety Report 15204200 (Version 1)
Quarter: 2018Q3

REPORT INFORMATION
  Report Type: Spontaneous
  Country: FR (occurrence: FR)
  Receive Date: 20180726
  Receipt Date: 20180726
  Transmission Date: 20181010
  Serious: Yes (Other)
  Sender: FDA-Public Use
  Company Number: FR-ALLERGAN-1837111US

PATIENT
  Age: 55 Year
  Sex: Female

DRUGS (4)
  1. NOLVADEX [Suspect]
     Active Substance: TAMOXIFEN CITRATE
     Indication: BREAST CANCER
     Dosage: 20 MG, QD
     Route: 048
     Dates: start: 201804, end: 20180628
  2. LEVOTHYROX [Concomitant]
     Active Substance: LEVOTHYROXINE
     Dosage: UNK, QAM
     Route: 065
  3. CITALOPRAM HYDROBROMIDE ? BP [Suspect]
     Active Substance: CITALOPRAM HYDROBROMIDE
     Indication: PRODUCT USED FOR UNKNOWN INDICATION
     Dosage: 10 MG, QD
     Route: 065
     Dates: start: 201804
  4. NOLVADEX [Suspect]
     Active Substance: TAMOXIFEN CITRATE
     Dosage: 0.5 DF, BID (HALF TABLET MORNING AND EVENING)
     Route: 048
     Dates: start: 20180628

REACTIONS (8)
  - Decreased appetite [Unknown]
  - Disturbance in attention [Not Recovered/Not Resolved]
  - Hot flush [Recovering/Resolving]
  - Fatigue [Not Recovered/Not Resolved]
  - Muscle spasms [Recovering/Resolving]
  - Feeling abnormal [Not Recovered/Not Resolved]
  - Somnolence [Not Recovered/Not Resolved]
  - Depression [Not Recovered/Not Resolved]

NARRATIVE: CASE EVENT DATE: 201804
